FAERS Safety Report 13988532 (Version 1)
Quarter: 2017Q3

REPORT INFORMATION
  Report Type: Spontaneous
  Country: FR (occurrence: FR)
  Receive Date: 20170919
  Receipt Date: 20170919
  Transmission Date: 20171128
  Serious: Yes (Life-Threatening, Hospitalization, Other)
  Sender: FDA-Public Use
  Company Number: FR-SA-A02200900146

PATIENT
  Age: 70 Year
  Sex: Male

DRUGS (7)
  1. EFFEXOR [Suspect]
     Active Substance: VENLAFAXINE HYDROCHLORIDE
     Indication: PRODUCT USED FOR UNKNOWN INDICATION
     Route: 048
  2. XANAX [Concomitant]
     Active Substance: ALPRAZOLAM
     Indication: PRODUCT USED FOR UNKNOWN INDICATION
     Dosage: UNIT DOSE: .25 MG
     Route: 048
  3. AMLOR [Concomitant]
     Active Substance: AMLODIPINE BESYLATE
     Indication: PRODUCT USED FOR UNKNOWN INDICATION
     Dosage: UNIT DOSE: 10 MG
     Route: 048
  4. PLAVIX [Suspect]
     Active Substance: CLOPIDOGREL BISULFATE
     Indication: NERVOUS SYSTEM DISORDER
     Dosage: UNIT DOSE: 75 MG
     Route: 048
     Dates: start: 2007, end: 200811
  5. ADVIL [Suspect]
     Active Substance: IBUPROFEN
     Indication: DENTAL CARE
     Dosage: UNIT DOSE: 400 MG
     Route: 048
     Dates: start: 20081113, end: 20081113
  6. GALENIC /HYDROCHLOROTHIAZIDE/VALSARTAN/ [Concomitant]
     Active Substance: HYDROCHLOROTHIAZIDE\VALSARTAN
     Indication: PRODUCT USED FOR UNKNOWN INDICATION
     Dosage: UNIT DOSE: 25 MG
     Route: 048
  7. EVEROLIMUS [Suspect]
     Active Substance: EVEROLIMUS
     Indication: KAPOSI^S SARCOMA
     Route: 048
     Dates: start: 20081003, end: 20081114

REACTIONS (7)
  - Gastric ulcer haemorrhage [Recovering/Resolving]
  - Haematemesis [Recovering/Resolving]
  - Diabetes mellitus [Not Recovered/Not Resolved]
  - Adenocarcinoma gastric [Unknown]
  - Anaemia [Recovering/Resolving]
  - Second primary malignancy [Unknown]
  - Malignant neoplasm progression [Unknown]

NARRATIVE: CASE EVENT DATE: 20081017
